FAERS Safety Report 24021292 (Version 1)
Quarter: 2024Q2

REPORT INFORMATION
  Report Type: Spontaneous
  Country: US (occurrence: US)
  Receive Date: 20240627
  Receipt Date: 20240627
  Transmission Date: 20240715
  Serious: No
  Sender: FDA-Public Use
  Company Number: US-AstraZeneca-CH-00653434A

PATIENT

DRUGS (1)
  1. STRENSIQ [Suspect]
     Active Substance: ASFOTASE ALFA
     Indication: Product used for unknown indication
     Dosage: 10 MILLIGRAM, 6 DAYS A WEEK
     Route: 065

REACTIONS (4)
  - Injection site reaction [Recovering/Resolving]
  - Injection site pain [Unknown]
  - Illness [Recovering/Resolving]
  - Ex-alcohol user [Recovering/Resolving]
